FAERS Safety Report 9320003 (Version 1)
Quarter: 2013Q2

REPORT INFORMATION
  Report Type: Spontaneous
  Country: DE (occurrence: DE)
  Receive Date: 20130530
  Receipt Date: 20130530
  Transmission Date: 20140414
  Serious: Yes (Life-Threatening, Hospitalization)
  Sender: FDA-Public Use
  Company Number: DE-ELI_LILLY_AND_COMPANY-DE201211004251

PATIENT
  Age: 11 Year
  Sex: Female

DRUGS (3)
  1. HUMATROPE [Suspect]
     Indication: SMALL FOR DATES BABY
     Dosage: UNK UNK, UNKNOWN
     Route: 058
     Dates: start: 200404, end: 200606
  2. HUMATROPE [Suspect]
     Dosage: UNK
     Dates: start: 200905, end: 201211
  3. L-THYROXINE [Concomitant]
     Dosage: 75 UG, QD

REACTIONS (1)
  - Acute myeloid leukaemia [Not Recovered/Not Resolved]
